FAERS Safety Report 25111162 (Version 1)
Quarter: 2025Q1

REPORT INFORMATION
  Report Type: Spontaneous
  Country: US (occurrence: US)
  Receive Date: 20250324
  Receipt Date: 20250324
  Transmission Date: 20250409
  Serious: Yes (Hospitalization, Other)
  Sender: NOVITIUM PHARMA
  Company Number: US-NOVITIUMPHARMA-2025USNVP00737

PATIENT
  Age: 92 Year
  Sex: Male

DRUGS (3)
  1. LIDOCAINE HYDROCHLORIDE [Suspect]
     Active Substance: LIDOCAINE HYDROCHLORIDE
     Indication: Local anaesthesia
     Route: 043
  2. EPINEPHRINE [Concomitant]
     Active Substance: EPINEPHRINE
     Indication: Pulseless electrical activity
  3. SODIUM BICARBONATE [Concomitant]
     Active Substance: SODIUM BICARBONATE
     Indication: Pulseless electrical activity

REACTIONS (4)
  - Local anaesthetic systemic toxicity [Unknown]
  - Mental status changes [Unknown]
  - Cardiac arrest [Unknown]
  - Generalised tonic-clonic seizure [Unknown]
